FAERS Safety Report 5546087-4 (Version None)
Quarter: 2007Q4

REPORT INFORMATION
  Report Type: 
  Country: None (occurrence: None)
  Receive Date: 20071211
  Receipt Date: 20071002
  Transmission Date: 20080405
  Serious: No
  Sender: FDA-Public Use
  Company Number: US-BRISTOL-MYERS SQUIBB COMPANY-13926258

PATIENT
  Age: 61 Year
  Sex: Female
  Weight: 59 kg

DRUGS (5)
  1. EMSAM [Suspect]
     Indication: DEPRESSION
     Route: 062
  2. KLONOPIN [Concomitant]
     Indication: INSOMNIA
  3. PROTONIX [Concomitant]
  4. ZOCOR [Concomitant]
  5. ASPIRIN [Concomitant]

REACTIONS (2)
  - TREMOR [None]
  - VISION BLURRED [None]
